FAERS Safety Report 6020760-6 (Version None)
Quarter: 2008Q4

REPORT INFORMATION
  Report Type: 
  Country: None (occurrence: None)
  Receive Date: 20081229
  Receipt Date: 20081218
  Transmission Date: 20090506
  Serious: Yes (Other)
  Sender: FDA-Public Use
  Company Number: PHHY2008DE32659

PATIENT
  Age: 58 Year
  Sex: Male

DRUGS (3)
  1. ZOMETA [Suspect]
     Indication: METASTASES TO BONE
     Dosage: 4 MG EVERY 4 WEEKS
     Route: 042
     Dates: start: 20050101
  2. ZOMETA [Suspect]
     Indication: PROSTATE CANCER
  3. ANTIHYPERTENSIVES [Concomitant]

REACTIONS (5)
  - DENTAL CARE [None]
  - DENTAL IMPLANTATION [None]
  - IMPAIRED HEALING [None]
  - MEDICAL DEVICE REMOVAL [None]
  - OSTEITIS [None]
